FAERS Safety Report 26059158 (Version 1)
Quarter: 2025Q4

REPORT INFORMATION
  Report Type: Report from Study
  Country: CA (occurrence: CA)
  Receive Date: 20251118
  Receipt Date: 20251118
  Transmission Date: 20260119
  Serious: Yes (Other)
  Sender: ABBVIE
  Company Number: CA-ABBVIE-6549487

PATIENT
  Age: 31 Year
  Sex: Female

DRUGS (2)
  1. QULIPTA [Suspect]
     Active Substance: ATOGEPANT
     Indication: Migraine
     Route: 048
     Dates: start: 20250922
  2. TOPAMAX [Concomitant]
     Active Substance: TOPIRAMATE
     Indication: Product used for unknown indication
     Dosage: ANTICONVULSANT

REACTIONS (1)
  - Suicidal ideation [Unknown]
